FAERS Safety Report 6183280-4 (Version None)
Quarter: 2009Q2

REPORT INFORMATION
  Report Type: 
  Country: None (occurrence: None)
  Receive Date: 20090507
  Receipt Date: 20090429
  Transmission Date: 20091009
  Serious: Yes (Other)
  Sender: FDA-Public Use
  Company Number: PHHO2007AU05598

PATIENT
  Sex: Male
  Weight: 92.8 kg

DRUGS (1)
  1. RAD 666 RAD+TAB+PTR [Suspect]
     Indication: RENAL TRANSPLANT
     Dosage: 0.75 MG, BID
     Route: 048
     Dates: start: 20061121

REACTIONS (4)
  - BASAL CELL CARCINOMA [None]
  - HYPERKERATOSIS [None]
  - MALIGNANT TUMOUR EXCISION [None]
  - SQUAMOUS CELL CARCINOMA OF SKIN [None]
